FAERS Safety Report 19646981 (Version 1)
Quarter: 2021Q3

REPORT INFORMATION
  Report Type: Spontaneous
  Country: JP (occurrence: JP)
  Receive Date: 20210802
  Receipt Date: 20210802
  Transmission Date: 20211014
  Serious: Yes (Hospitalization)
  Sender: FDA-Public Use
  Company Number: JP-MYLANLABS-2021M1046727

PATIENT
  Age: 22 Month
  Sex: Female

DRUGS (5)
  1. EDARAVONE [Suspect]
     Active Substance: EDARAVONE
     Indication: CEREBRAL INFARCTION
     Route: 065
  2. BOSENTAN. [Suspect]
     Active Substance: BOSENTAN
     Indication: CEREBRAL INFARCTION
     Dosage: 3 MILLIGRAM/KILOGRAM
     Route: 065
  3. BOSENTAN. [Suspect]
     Active Substance: BOSENTAN
     Dosage: 6 MILLIGRAM/KILOGRAM
     Route: 065
  4. CILOSTAZOL. [Suspect]
     Active Substance: CILOSTAZOL
     Indication: CEREBRAL INFARCTION
     Route: 065
  5. BOSENTAN. [Suspect]
     Active Substance: BOSENTAN
     Dosage: 4 MILLIGRAM/KILOGRAM
     Route: 065

REACTIONS (1)
  - Drug ineffective [Unknown]
